FAERS Safety Report 10434680 (Version 1)
Quarter: 2014Q2

REPORT INFORMATION
  Report Type: Spontaneous
  Country: US (occurrence: None)
  Receive Date: 20140514
  Receipt Date: 20140514
  Transmission Date: 20141212
  Serious: Yes (Other)
  Sender: FDA-Public Use
  Company Number: 101729U

PATIENT
  Age: 48 Year
  Sex: Female
  Weight: 58.9 kg

DRUGS (5)
  1. CIMZIA [Suspect]
     Indication: CROHN^S DISEASE
     Dates: start: 201208, end: 20130530
  2. MERCAPTOPURINE [Concomitant]
  3. DEXLANSOPRAZOLE [Concomitant]
  4. VALIUM [Concomitant]
  5. HYDROCODONE [Concomitant]

REACTIONS (1)
  - Anal cancer [None]
